FAERS Safety Report 11120671 (Version 2)
Quarter: 2018Q2

REPORT INFORMATION
  Report Type: Spontaneous
  Country: US (occurrence: US)
  Receive Date: 20150519
  Receipt Date: 20180411
  Transmission Date: 20180711
  Serious: Yes (Other)
  Sender: FDA-Public Use
  Company Number: US-BAYER-2015-222757

PATIENT
  Age: 30 Year
  Sex: Female

DRUGS (1)
  1. MIRENA [Suspect]
     Active Substance: LEVONORGESTREL
     Indication: CONTRACEPTION
     Dosage: UNK
     Route: 015
     Dates: start: 20110419, end: 20110502

REACTIONS (5)
  - Feeling abnormal [Not Recovered/Not Resolved]
  - Seizure [Not Recovered/Not Resolved]
  - Epileptic aura [Not Recovered/Not Resolved]
  - Deja vu [Not Recovered/Not Resolved]
  - Daydreaming [Not Recovered/Not Resolved]

NARRATIVE: CASE EVENT DATE: 201104
